FAERS Safety Report 7834102-4 (Version None)
Quarter: 2011Q4

REPORT INFORMATION
  Report Type: 
  Country: None (occurrence: None)
  Receive Date: 20111024
  Receipt Date: 20111024
  Transmission Date: 20120403
  Serious: Yes (Other)
  Sender: FDA-Public Use
  Company Number: None

PATIENT
  Age: 46 Year
  Sex: Male

DRUGS (1)
  1. PREGABALIN [Suspect]
     Dosage: 100 MG
     Route: 048
     Dates: start: 20110929, end: 20111006

REACTIONS (5)
  - CONSTIPATION [None]
  - BACK PAIN [None]
  - CHROMATURIA [None]
  - BLOOD CREATINE PHOSPHOKINASE INCREASED [None]
  - RHABDOMYOLYSIS [None]
